FAERS Safety Report 12357998 (Version 1)
Quarter: 2016Q2

REPORT INFORMATION
  Report Type: Spontaneous
  Country: GB (occurrence: GB)
  Receive Date: 20160512
  Receipt Date: 20160512
  Transmission Date: 20160815
  Serious: Yes (Other)
  Sender: FDA-Public Use
  Company Number: GB-ACCORD-039972

PATIENT
  Age: 79 Year
  Sex: Female

DRUGS (2)
  1. ENBREL [Suspect]
     Active Substance: ETANERCEPT
     Indication: RHEUMATOID ARTHRITIS
     Dosage: 7.1429 MG,?SOLUTION FOR INJECTION IN PRE-FILLED PEN
     Route: 058
     Dates: end: 20160314
  2. METHOTREXATE [Suspect]
     Active Substance: METHOTREXATE
     Indication: RHEUMATOID ARTHRITIS
     Dosage: 0.7143 MG?ALSO RECEIVED 2.5 MG, WEEKLY
     Route: 065

REACTIONS (4)
  - Injection site pain [Unknown]
  - Injection site reaction [Recovered/Resolved]
  - Pharyngitis [Unknown]
  - Injection site swelling [Recovered/Resolved]
